FAERS Safety Report 8374773-X (Version None)
Quarter: 2012Q2

REPORT INFORMATION
  Report Type: 
  Country: None (occurrence: None)
  Receive Date: 20120521
  Receipt Date: 20120418
  Transmission Date: 20120825
  Serious: No
  Sender: FDA-Public Use
  Company Number: US-ASTRAZENECA-2011SE16391

PATIENT
  Age: 40 Year
  Sex: Male

DRUGS (2)
  1. NEXIUM [Suspect]
     Route: 048
  2. ACIPHEX [Concomitant]

REACTIONS (6)
  - GASTROOESOPHAGEAL REFLUX DISEASE [None]
  - PAIN [None]
  - CHEST PAIN [None]
  - MALAISE [None]
  - SLEEP DISORDER DUE TO GENERAL MEDICAL CONDITION, INSOMNIA TYPE [None]
  - INTENTIONAL DRUG MISUSE [None]
